FAERS Safety Report 4783689-7 (Version None)
Quarter: 2005Q3

REPORT INFORMATION
  Report Type: 
  Country: None (occurrence: None)
  Receive Date: 20050927
  Receipt Date: 20050602
  Transmission Date: 20060218
  Serious: No
  Sender: FDA-Public Use
  Company Number: USA050598968

PATIENT
  Age: 36 Year
  Sex: Female

DRUGS (3)
  1. STRATTERA [Suspect]
     Indication: ATTENTION DEFICIT/HYPERACTIVITY DISORDER
     Dosage: 80 MG DAY
  2. VITAMIN CAP [Concomitant]
  3. VITAMIN CAP [Concomitant]

REACTIONS (3)
  - DRUG INTERACTION [None]
  - PSYCHOTIC DISORDER [None]
  - STOMACH DISCOMFORT [None]
